FAERS Safety Report 6522020-3 (Version None)
Quarter: 2009Q4

REPORT INFORMATION
  Report Type: 
  Country: None (occurrence: None)
  Receive Date: 20091230
  Receipt Date: 20091224
  Transmission Date: 20100525
  Serious: Yes (Hospitalization, Other)
  Sender: FDA-Public Use
  Company Number: JP-ROCHE-598291

PATIENT
  Sex: Female
  Weight: 60.1 kg

DRUGS (23)
  1. TRASTUZUMAB [Suspect]
     Indication: BREAST CANCER METASTATIC
     Dosage: DOSE DECREASED
     Route: 041
     Dates: start: 20070801, end: 20070801
  2. TRASTUZUMAB [Suspect]
     Dosage: DOSE INCREASED.
     Route: 041
  3. TRASTUZUMAB [Suspect]
     Dosage: DOSE DECREASED
     Route: 041
     Dates: start: 20080306, end: 20080306
  4. TRASTUZUMAB [Suspect]
     Route: 041
     Dates: start: 20080313, end: 20080605
  5. TRASTUZUMAB [Suspect]
     Route: 041
     Dates: start: 20080626
  6. TAXOTERE [Suspect]
     Indication: BREAST CANCER METASTATIC
     Dosage: DRUG REPORTED AS DOCETAXEL HYDRATE
     Route: 041
     Dates: start: 20080717, end: 20090513
  7. OMEPRAZOLE [Suspect]
     Indication: REFLUX OESOPHAGITIS
     Route: 048
  8. GANATON [Suspect]
     Indication: REFLUX OESOPHAGITIS
     Route: 048
  9. CEVIMELINE [Suspect]
     Indication: SJOGREN'S SYNDROME
     Dosage: DRUG REPORTED AS SALIGREN.
     Route: 048
  10. FASTIC [Suspect]
     Indication: DIABETES MELLITUS
     Route: 048
  11. BASEN [Suspect]
     Indication: DIABETES MELLITUS
     Route: 048
  12. CHOLEBRINE [Suspect]
     Indication: HYPERLIPIDAEMIA
     Route: 048
  13. LENDORMIN [Suspect]
     Indication: INSOMNIA
     Route: 048
     Dates: start: 20080619
  14. ALOSENN [Suspect]
     Indication: CONSTIPATION
     Route: 048
  15. MAGMITT [Suspect]
     Indication: CONSTIPATION
     Dosage: FREQUENCY: / 1 DAY.
     Route: 048
  16. LASIX [Suspect]
     Route: 048
     Dates: start: 20090205, end: 20091006
  17. ALDACTONE [Suspect]
     Route: 048
     Dates: start: 20090205, end: 20091006
  18. ALLEGRA [Suspect]
     Indication: DERMATITIS ALLERGIC
     Route: 048
     Dates: start: 20090924, end: 20091007
  19. TALION [Suspect]
     Indication: DERMATITIS ALLERGIC
     Route: 048
     Dates: start: 20091007, end: 20091020
  20. ATARAX [Suspect]
     Indication: DERMATITIS ALLERGIC
     Dosage: DRUG: ATARAX-P.
     Route: 048
     Dates: start: 20091007
  21. ZYRTEC [Suspect]
     Indication: DERMATITIS ALLERGIC
     Route: 048
     Dates: start: 20091015
  22. ZESULAN [Suspect]
     Indication: DERMATITIS ALLERGIC
     Route: 048
     Dates: start: 20091021
  23. CLARITIN [Suspect]
     Indication: DERMATITIS ALLERGIC
     Dosage: DRUG: CLARITIN REDITABS.
     Route: 048
     Dates: start: 20091021, end: 20091028

REACTIONS (26)
  - ALOPECIA [None]
  - BLOOD ALBUMIN DECREASED [None]
  - DECREASED APPETITE [None]
  - DEHYDRATION [None]
  - DERMATITIS ALLERGIC [None]
  - DRY SKIN [None]
  - DYSGEUSIA [None]
  - GLOSSITIS [None]
  - HAEMOGLOBIN DECREASED [None]
  - HYPOAESTHESIA [None]
  - LACRIMATION INCREASED [None]
  - MALAISE [None]
  - MYALGIA [None]
  - NAIL DISORDER [None]
  - NASOPHARYNGITIS [None]
  - NAUSEA [None]
  - NEUTROPHIL COUNT DECREASED [None]
  - OEDEMA PERIPHERAL [None]
  - PROTEIN TOTAL DECREASED [None]
  - PYREXIA [None]
  - RASH [None]
  - STOMATITIS [None]
  - VARICOSE VEIN [None]
  - VOMITING [None]
  - WEIGHT DECREASED [None]
  - WHITE BLOOD CELL COUNT DECREASED [None]
